FAERS Safety Report 8344635-2 (Version None)
Quarter: 2012Q2

REPORT INFORMATION
  Report Type: 
  Country: None (occurrence: None)
  Receive Date: 20120508
  Receipt Date: 20120321
  Transmission Date: 20120825
  Serious: Yes (Other)
  Sender: FDA-Public Use
  Company Number: US-ROCHE-1064608

PATIENT
  Age: 72 Year
  Sex: Male

DRUGS (7)
  1. LEUCOVORIN CALCIUM [Suspect]
     Indication: COLORECTAL CANCER
     Dates: start: 20071201
  2. IRINOTECAN HCL [Concomitant]
  3. BEVACIZUMAB [Suspect]
     Indication: COLORECTAL CANCER
     Dates: start: 20071201
  4. OXALIPLATIN [Suspect]
     Indication: COLORECTAL CANCER
     Dates: start: 20071201
  5. CAPECITABINE [Suspect]
     Indication: COLORECTAL CANCER
  6. FLUOROURACIL [Suspect]
     Indication: COLORECTAL CANCER
     Dates: start: 20071201
  7. PANITUMUMAB [Suspect]
     Indication: COLORECTAL CANCER
     Dates: start: 20100401

REACTIONS (6)
  - TOXICITY TO VARIOUS AGENTS [None]
  - SKIN TOXICITY [None]
  - DISEASE PROGRESSION [None]
  - WEIGHT DECREASED [None]
  - COLON CANCER [None]
  - DIARRHOEA [None]
